FAERS Safety Report 7282077-1 (Version None)
Quarter: 2011Q1

REPORT INFORMATION
  Report Type: 
  Country: None (occurrence: None)
  Receive Date: 20110208
  Receipt Date: 20110126
  Transmission Date: 20110831
  Serious: Yes (Hospitalization)
  Sender: FDA-Public Use
  Company Number: US-CELGENEUS-163-21880-11012762

PATIENT
  Sex: Female

DRUGS (7)
  1. NAPHRO-VITE [Concomitant]
     Route: 065
     Dates: start: 20101209
  2. ALLOPURINOL [Concomitant]
     Route: 065
     Dates: start: 20101216
  3. VALACICLOVIR [Concomitant]
     Route: 065
     Dates: start: 20101216
  4. MORPHINE [Concomitant]
     Route: 065
     Dates: start: 20101202
  5. DEXAMETHASONE [Concomitant]
     Route: 065
     Dates: start: 20101209
  6. GLIPIZIDE [Concomitant]
     Route: 065
     Dates: start: 20101209
  7. REVLIMID [Suspect]
     Indication: MULTIPLE MYELOMA
     Route: 048
     Dates: start: 20101201, end: 20101201

REACTIONS (1)
  - VENTRICULAR FIBRILLATION [None]
